FAERS Safety Report 9522819 (Version 1)
Quarter: 2013Q3

REPORT INFORMATION
  Report Type: Spontaneous
  Country: DK (occurrence: DK)
  Receive Date: 20130913
  Receipt Date: 20130913
  Transmission Date: 20140515
  Serious: Yes (Other)
  Sender: FDA-Public Use
  Company Number: DK-ROCHE-1271303

PATIENT
  Age: 47 Year
  Sex: Male

DRUGS (1)
  1. RANIBIZUMAB [Suspect]
     Indication: CHOROIDAL NEOVASCULARISATION
     Route: 050

REACTIONS (8)
  - Retinal detachment [Unknown]
  - Macular degeneration [Unknown]
  - Retinal detachment [Unknown]
  - Retinal degeneration [Unknown]
  - Visual field defect [Unknown]
  - Ophthalmological examination abnormal [Unknown]
  - Eye disorder [Unknown]
  - Retinal disorder [Unknown]
